FAERS Safety Report 5062604-5 (Version None)
Quarter: 2006Q3

REPORT INFORMATION
  Report Type: 
  Country: None (occurrence: None)
  Receive Date: 20060725
  Receipt Date: 20060725
  Transmission Date: 20061208
  Serious: Yes (Disabling)
  Sender: FDA-Public Use
  Company Number: None

PATIENT
  Sex: Male
  Weight: 71.2147 kg

DRUGS (3)
  1. CLARITHROMYCIN EXTENDED RELEASE [Suspect]
     Indication: SINUSITIS
     Dosage: 500 MG QD PO
     Route: 048
     Dates: start: 20060630, end: 20060713
  2. TRICOR [Concomitant]
  3. NEXIUM [Concomitant]

REACTIONS (2)
  - AGEUSIA [None]
  - ANOSMIA [None]
